FAERS Safety Report 4434481-4 (Version None)
Quarter: 2004Q3

REPORT INFORMATION
  Report Type: 
  Country: None (occurrence: None)
  Receive Date: 20040726
  Receipt Date: 20040308
  Transmission Date: 20050211
  Serious: No
  Sender: FDA-Public Use
  Company Number: USA040361237

PATIENT
  Age: 76 Year
  Sex: Female
  Weight: 56 kg

DRUGS (4)
  1. FORTEO [Suspect]
     Indication: BONE SARCOMA
     Dates: start: 20030801
  2. VITAMIN E [Concomitant]
  3. ASPIRIN [Concomitant]
  4. CALCIUM [Concomitant]

REACTIONS (5)
  - BLOOD PRESSURE INCREASED [None]
  - DECREASED APPETITE [None]
  - PAIN IN EXTREMITY [None]
  - SLEEP DISORDER [None]
  - WEIGHT DECREASED [None]
